FAERS Safety Report 7778344-5 (Version None)
Quarter: 2011Q3

REPORT INFORMATION
  Report Type: 
  Country: None (occurrence: None)
  Receive Date: 20110926
  Receipt Date: 20110912
  Transmission Date: 20111222
  Serious: Yes (Hospitalization)
  Sender: FDA-Public Use
  Company Number: US-BAYER-2011-068637

PATIENT
  Age: 21 Year
  Sex: Female
  Weight: 58.957 kg

DRUGS (7)
  1. YAZ [Suspect]
     Indication: ACNE
     Dosage: UNK
     Dates: start: 20100514, end: 20100807
  2. PULMICORT [Concomitant]
     Dosage: UNK UNK, BID
     Route: 048
  3. PREDNISONE [Concomitant]
     Dosage: 15 MG, QD
     Route: 048
  4. RHINOCORT [Concomitant]
     Route: 045
  5. CLARITIN [Concomitant]
     Dosage: UNK UNK, ONCE
     Route: 048
  6. METHOTREXATE [Concomitant]
     Dosage: UNK UNK, OW
     Route: 048
  7. FOLIC ACID [Concomitant]
     Dosage: 2 MG, QD
     Route: 048

REACTIONS (2)
  - DEEP VEIN THROMBOSIS [None]
  - PULMONARY EMBOLISM [None]
